FAERS Safety Report 6644089-8 (Version None)
Quarter: 2010Q1

REPORT INFORMATION
  Report Type: 
  Country: None (occurrence: None)
  Receive Date: 20100322
  Receipt Date: 20100309
  Transmission Date: 20100710
  Serious: Yes (Hospitalization)
  Sender: FDA-Public Use
  Company Number: PHHY2009GB13298

PATIENT
  Sex: Female

DRUGS (1)
  1. CLOZARIL [Suspect]
     Indication: SCHIZOPHRENIA
     Dosage: 500 MG, DAILY
     Route: 048
     Dates: start: 20080814

REACTIONS (5)
  - C-REACTIVE PROTEIN INCREASED [None]
  - INTESTINAL OBSTRUCTION [None]
  - MECHANICAL VENTILATION [None]
  - RESPIRATORY FAILURE [None]
  - SEPSIS [None]
